FAERS Safety Report 17591376 (Version 3)
Quarter: 2020Q2

REPORT INFORMATION
  Report Type: Spontaneous
  Country: JP (occurrence: JP)
  Receive Date: 20200327
  Receipt Date: 20200414
  Transmission Date: 20200713
  Serious: Yes (Life-Threatening, Other)
  Sender: FDA-Public Use
  Company Number: JP-PFIZER INC-2020129796

PATIENT
  Age: 75 Year
  Sex: Female
  Weight: 157 kg

DRUGS (8)
  1. CELECOX [Suspect]
     Active Substance: CELECOXIB
     Indication: PROCEDURAL PAIN
     Dosage: 100 MG, 2X/DAY
     Route: 048
     Dates: start: 20200125
  2. VALSARTAN. [Concomitant]
     Active Substance: VALSARTAN
     Indication: CARDIAC FAILURE
  3. DIART [Suspect]
     Active Substance: AZOSEMIDE
     Indication: HEPATIC CIRRHOSIS
     Dosage: 30 MG, 1X/DAY
     Route: 048
     Dates: start: 20200312
  4. DIART [Suspect]
     Active Substance: AZOSEMIDE
     Indication: ASCITES
  5. VALSARTAN. [Concomitant]
     Active Substance: VALSARTAN
     Indication: HYPERTENSION
     Dosage: 80 MG, DAILY
     Route: 048
  6. OMEPRAZOLE AMEL [OMEPRAZOLE] [Concomitant]
     Dosage: 20 MG, DAILY
  7. LYRICA [Suspect]
     Active Substance: PREGABALIN
     Indication: NEURALGIA
     Dosage: 25 MG, 1X/DAY (BEFORE BEDTIME)
     Route: 048
     Dates: start: 20200125, end: 20200326
  8. FERROMIA [Concomitant]
     Active Substance: SODIUM FERROUS CITRATE
     Indication: IRON DEFICIENCY ANAEMIA
     Dosage: 50 MG, 1X/DAY
     Route: 048
     Dates: start: 20200129

REACTIONS (17)
  - Blood lactate dehydrogenase increased [Unknown]
  - Oedema peripheral [Recovering/Resolving]
  - Weight decreased [Recovering/Resolving]
  - Alanine aminotransferase increased [Unknown]
  - Weight increased [Unknown]
  - Blister [Unknown]
  - Blood bilirubin increased [Unknown]
  - Generalised oedema [Recovering/Resolving]
  - Brain natriuretic peptide increased [Unknown]
  - Haematocrit decreased [Unknown]
  - White blood cell count decreased [Unknown]
  - Haemoglobin decreased [Unknown]
  - Red blood cell count decreased [Unknown]
  - Ascites [Unknown]
  - Skin erosion [Unknown]
  - Blood albumin decreased [Unknown]
  - Pleural effusion [Unknown]

NARRATIVE: CASE EVENT DATE: 20200127
